FAERS Safety Report 17431160 (Version 1)
Quarter: 2020Q1

REPORT INFORMATION
  Report Type: Spontaneous
  Country: US (occurrence: US)
  Receive Date: 20200217
  Receipt Date: 20200217
  Transmission Date: 20200409
  Serious: Yes (Hospitalization)
  Sender: FDA-Public Use
  Company Number: None

PATIENT
  Age: 42 Year
  Sex: Female

DRUGS (13)
  1. BUPROPN HCL [Concomitant]
     Active Substance: BUPROPION HYDROCHLORIDE
  2. CLARITIN [Concomitant]
     Active Substance: LORATADINE
  3. KETOROLAC [Concomitant]
     Active Substance: KETOROLAC TROMETHAMINE
  4. EMGALITY [Concomitant]
     Active Substance: GALCANEZUMAB-GNLM
  5. LEVETIRACETA [Concomitant]
  6. GENVOYA [Suspect]
     Active Substance: COBICISTAT\ELVITEGRAVIR\EMTRICITABINE\TENOFOVIR ALAFENAMIDE FUMARATE
     Indication: HIV INFECTION
     Route: 048
     Dates: start: 20191016
  7. GABAPENTIN. [Concomitant]
     Active Substance: GABAPENTIN
  8. ESTRADIOL. [Concomitant]
     Active Substance: ESTRADIOL
  9. MEMANTINE. [Concomitant]
     Active Substance: MEMANTINE
  10. MULTIVITAMIN [Concomitant]
     Active Substance: VITAMINS
  11. ORPHENADRINE [Concomitant]
     Active Substance: ORPHENADRINE
  12. CLONZEPAM [Concomitant]
     Active Substance: CLONAZEPAM
  13. ADDERALL XR [Concomitant]
     Active Substance: AMPHETAMINE ASPARTATE\AMPHETAMINE SULFATE\DEXTROAMPHETAMINE SACCHARATE\DEXTROAMPHETAMINE SULFATE

REACTIONS (1)
  - Migraine [None]

NARRATIVE: CASE EVENT DATE: 20200124
